FAERS Safety Report 12503397 (Version 1)
Quarter: 2016Q2

REPORT INFORMATION
  Report Type: Spontaneous
  Country: US (occurrence: None)
  Receive Date: 20160627
  Receipt Date: 20160627
  Transmission Date: 20160815
  Serious: Yes (Other)
  Sender: FDA-Public Use
  Company Number: None

PATIENT
  Age: 68 Year
  Sex: Male
  Weight: 90.72 kg

DRUGS (11)
  1. BENTYL [Concomitant]
     Active Substance: DICYCLOMINE HYDROCHLORIDE
  2. FLEXERIL [Concomitant]
     Active Substance: CYCLOBENZAPRINE HYDROCHLORIDE
  3. FLEXOPLEX JOINT/ARTHRITIS SUPPLEMENT [Concomitant]
  4. ALFUZOSIN [Concomitant]
     Active Substance: ALFUZOSIN
  5. ZANTAC [Concomitant]
     Active Substance: RANITIDINE HYDROCHLORIDE
  6. ZYRTEC [Concomitant]
     Active Substance: CETIRIZINE HYDROCHLORIDE
  7. SIMPLY RIGHT PROBIOTIC [Concomitant]
  8. ALFUZOSIN HYDROCHLORIDE ER [Suspect]
     Active Substance: ALFUZOSIN HYDROCHLORIDE
     Indication: PROSTATOMEGALY
     Dosage: 90 TABLET(S) IN THE MORNING TAKEN BY MOUTH
     Route: 048
     Dates: start: 20151123, end: 20160615
  9. GABAPENTIN. [Concomitant]
     Active Substance: GABAPENTIN
  10. MEGA RED FISH OIL [Concomitant]
  11. EQUATE STOOL SOFTENER [Concomitant]
     Active Substance: CASANTHRANOL\DOCUSATE SODIUM

REACTIONS (6)
  - Blood pressure orthostatic decreased [None]
  - Asthenia [None]
  - Altered state of consciousness [None]
  - Dizziness exertional [None]
  - Dehydration [None]
  - Refusal of treatment by patient [None]

NARRATIVE: CASE EVENT DATE: 20160624
